FAERS Safety Report 8623467 (Version 2)
Quarter: 2014Q1

REPORT INFORMATION
  Report Type: Spontaneous
  Country: US (occurrence: None)
  Receive Date: 20120323
  Receipt Date: 20130305
  Transmission Date: 20141002
  Serious: Yes (Other)
  Sender: FDA-Public Use
  Company Number: 163-21880-11071526

PATIENT
  Age: 70 Year
  Sex: Female
  Weight: 86 kg

DRUGS (4)
  1. REVLIMID [Suspect]
     Indication: PLASMA CELL MYELOMA
     Dosage: SEE IMAGE
     Route: 048
     Dates: start: 201008
  2. ASA (ACETYLSALICYLIC ACID) [Concomitant]
  3. DECADRON (DEXAMETHASONE) [Concomitant]
  4. GLUCOSAMINE [Concomitant]

REACTIONS (7)
  - Deep vein thrombosis [None]
  - Pancytopenia [None]
  - Neuropathy peripheral [None]
  - Myalgia [None]
  - Rash [None]
  - Pruritus [None]
  - Arthralgia [None]
